FAERS Safety Report 6424348-4 (Version None)
Quarter: 2009Q4

REPORT INFORMATION
  Report Type: 
  Country: None (occurrence: None)
  Receive Date: 20091103
  Receipt Date: 20091028
  Transmission Date: 20100525
  Serious: Yes (Hospitalization)
  Sender: FDA-Public Use
  Company Number: US-BIOGENIDEC-2009BI035180

PATIENT
  Age: 50 Year
  Sex: Male

DRUGS (3)
  1. TYSABRI [Suspect]
     Indication: MULTIPLE SCLEROSIS
     Route: 042
     Dates: start: 20090611
  2. ANTI-DEPRESSANT (NOS) [Concomitant]
  3. CALCIUM [Concomitant]

REACTIONS (5)
  - ASTHENIA [None]
  - DIPLOPIA [None]
  - SPEECH DISORDER [None]
  - URINARY TRACT INFECTION [None]
  - VISUAL IMPAIRMENT [None]
